FAERS Safety Report 16205951 (Version 1)
Quarter: 2019Q2

REPORT INFORMATION
  Report Type: Spontaneous
  Country: US (occurrence: US)
  Receive Date: 20190417
  Receipt Date: 20190417
  Transmission Date: 20190711
  Serious: Yes (Death, Life-Threatening, Hospitalization, Other)
  Sender: FDA-Public Use
  Company Number: US-ACCORD-122111

PATIENT
  Age: 65 Year
  Sex: Female

DRUGS (2)
  1. FOLIC ACID. [Concomitant]
     Active Substance: FOLIC ACID
     Indication: RHEUMATOID ARTHRITIS
  2. METHOTREXATE. [Suspect]
     Active Substance: METHOTREXATE
     Indication: RHEUMATOID ARTHRITIS

REACTIONS (6)
  - Acute kidney injury [Fatal]
  - Hypoxia [Fatal]
  - Multiple organ dysfunction syndrome [Fatal]
  - Staphylococcal infection [Fatal]
  - Hypotension [Fatal]
  - Pancytopenia [Fatal]
